FAERS Safety Report 7670064-0 (Version None)
Quarter: 2011Q3

REPORT INFORMATION
  Report Type: 
  Country: None (occurrence: None)
  Receive Date: 20110808
  Receipt Date: 20110729
  Transmission Date: 20111222
  Serious: Yes (Death, Other)
  Sender: FDA-Public Use
  Company Number: US-BAYER-200939773NA

PATIENT
  Age: 71 Year
  Sex: Male
  Weight: 87.075 kg

DRUGS (26)
  1. DIURETICS [Concomitant]
  2. TRASYLOL [Suspect]
     Indication: CORONARY ARTERY BYPASS
     Dosage: UNK
     Route: 042
     Dates: start: 20000712
  3. RED BLOOD CELLS [Concomitant]
     Dosage: 13 UNITS
     Route: 042
     Dates: start: 20000713
  4. TRASYLOL [Suspect]
     Indication: AORTIC VALVE REPLACEMENT
  5. TRASYLOL [Suspect]
     Indication: AORTIC SURGERY
  6. LOTREL [Concomitant]
     Dosage: 5/20 MG DAILY
     Route: 048
  7. ISMO [Concomitant]
     Dosage: 60 MG, QD
     Route: 048
  8. ZOCOR [Concomitant]
     Dosage: 20 MG, QD
     Route: 048
  9. NITROGLYCERIN [Concomitant]
     Dosage: 0.5 MCG/KG/MINUTE
     Dates: start: 20000713, end: 20000713
  10. PLATELETS [Concomitant]
     Dosage: 20 UNITS
     Route: 042
     Dates: start: 20000713
  11. FRESH FROZEN PLASMA [Concomitant]
     Dosage: 19 U, UNK
     Route: 042
     Dates: start: 20000712
  12. POTASSIUM [Concomitant]
  13. GLUCOTROL [Concomitant]
     Dosage: 5 MG, QD
     Route: 048
  14. FENTANYL [Concomitant]
     Dosage: UNK
     Dates: start: 20000712, end: 20000712
  15. EPINEPHRINE [Concomitant]
     Dosage: 0.4MCG/KG/MINUTE
     Dates: start: 20000713, end: 20000713
  16. NOREPINEPHRINE BITARTRATE [Concomitant]
     Dosage: 0.2 MCG/KG/MINUTE
     Dates: start: 20000713, end: 20000713
  17. PLATELETS [Concomitant]
     Dosage: 30 U, UNK
     Route: 042
     Dates: start: 20000712
  18. CRYOPRECIPITATES [Concomitant]
     Dosage: 30 U, UNK
     Route: 042
     Dates: start: 20000712
  19. METFORMIN HCL [Concomitant]
  20. LASIX [Concomitant]
     Dosage: 80 MG, QD
     Route: 048
  21. ALDACTONE [Concomitant]
     Dosage: 25 MG, QD
     Route: 048
  22. GLUCOPHAGE [Concomitant]
     Dosage: 850 MG, QD
     Route: 048
  23. FRESH FROZEN PLASMA [Concomitant]
     Dosage: 4 UNITS
     Route: 042
     Dates: start: 20000713
  24. MILRINONE [Concomitant]
     Dosage: 0.25 MCG/KG/MINUTE
     Dates: start: 20000713, end: 20000713
  25. RED BLOOD CELLS [Concomitant]
     Dosage: 2 U, UNK
     Route: 042
     Dates: start: 20000712
  26. OMNIPAQUE 140 [Concomitant]
     Indication: CATHETERISATION CARDIAC
     Dosage: 190 ML, UNK
     Route: 042
     Dates: start: 20000511

REACTIONS (13)
  - UNEVALUABLE EVENT [None]
  - MULTI-ORGAN FAILURE [None]
  - DEATH [None]
  - ANXIETY [None]
  - RENAL INJURY [None]
  - INJURY [None]
  - RENAL IMPAIRMENT [None]
  - FEAR [None]
  - EMOTIONAL DISTRESS [None]
  - ANHEDONIA [None]
  - RENAL FAILURE [None]
  - STRESS [None]
  - PAIN [None]
